FAERS Safety Report 4849732-1 (Version None)
Quarter: 2005Q4

REPORT INFORMATION
  Report Type: 
  Country: None (occurrence: None)
  Receive Date: 20051115
  Receipt Date: 20050927
  Transmission Date: 20060501
  Serious: No
  Sender: FDA-Public Use
  Company Number: S05-USA-04444-01

PATIENT
  Age: 68 Year
  Sex: Female

DRUGS (5)
  1. NAMENDA [Suspect]
     Indication: DEMENTIA ALZHEIMER'S TYPE
     Dosage: 5 MG QD PO
     Route: 048
     Dates: start: 20050922
  2. ZOLOFT [Concomitant]
  3. RISPERDAL [Concomitant]
  4. AVALIDE [Concomitant]
  5. SPIRIVA (TRIOTROPIUM) [Concomitant]

REACTIONS (1)
  - SOMNOLENCE [None]
